FAERS Safety Report 20258705 (Version 1)
Quarter: 2021Q4

REPORT INFORMATION
  Report Type: Spontaneous
  Country: US (occurrence: None)
  Receive Date: 20211230
  Receipt Date: 20211230
  Transmission Date: 20220303
  Serious: Yes (Other)
  Sender: FDA-Public Use
  Company Number: None

PATIENT
  Age: 50 Year
  Sex: Female
  Weight: 64 kg

DRUGS (1)
  1. CASIRIVIMAB\IMDEVIMAB [Suspect]
     Active Substance: CASIRIVIMAB\IMDEVIMAB
     Indication: COVID-19
     Dosage: FREQUENCY : ONCE;?
     Route: 042

REACTIONS (7)
  - Dyspnoea [None]
  - Chest pain [None]
  - Vomiting [None]
  - Infusion related hypersensitivity reaction [None]
  - Pyrexia [None]
  - Chills [None]
  - Cough [None]

NARRATIVE: CASE EVENT DATE: 20211228
